FAERS Safety Report 12270458 (Version 1)
Quarter: 2016Q2

REPORT INFORMATION
  Report Type: Spontaneous
  Country: US (occurrence: None)
  Receive Date: 20160414
  Receipt Date: 20160414
  Transmission Date: 20160815
  Serious: Yes (Disabling)
  Sender: FDA-Public Use
  Company Number: None

PATIENT
  Age: 59 Year
  Sex: Female
  Weight: 68.04 kg

DRUGS (8)
  1. AUGMENTIN [Suspect]
     Active Substance: AMOXICILLIN\CLAVULANATE POTASSIUM
     Indication: SINUSITIS
     Route: 048
     Dates: start: 20160204, end: 20160214
  2. VITAMIN B COMPLEX WITH C [Concomitant]
     Active Substance: ASCORBIC ACID\CALCIUM PANTOTHENATE\CYANOCOBALAMIN\NIACINAMIDE\PYRIDOXINE HYDROCHLORIDE\RIBOFLAVIN\THIAMINE MONONITRATE
  3. BABY ASA [Concomitant]
     Active Substance: ASPIRIN
  4. XANAX [Concomitant]
     Active Substance: ALPRAZOLAM
  5. LIPITOR [Concomitant]
     Active Substance: ATORVASTATIN CALCIUM
  6. AMBIEN [Concomitant]
     Active Substance: ZOLPIDEM TARTRATE
  7. VITAMIN D [Concomitant]
     Active Substance: CHOLECALCIFEROL
  8. COENZYME Q10 [Concomitant]
     Active Substance: UBIDECARENONE

REACTIONS (4)
  - Muscular weakness [None]
  - Myasthenia gravis [None]
  - Mastication disorder [None]
  - Fatigue [None]

NARRATIVE: CASE EVENT DATE: 20160213
